FAERS Safety Report 8545326-5 (Version None)
Quarter: 2012Q3

REPORT INFORMATION
  Report Type: 
  Country: None (occurrence: None)
  Receive Date: 20120727
  Receipt Date: 20120720
  Transmission Date: 20120928
  Serious: Yes (Disabling, Other)
  Sender: FDA-Public Use
  Company Number: GB-ABBOTT-12P-167-0960446-00

PATIENT
  Age: 50 Year
  Sex: Male

DRUGS (4)
  1. VALPROATE SODIUM [Suspect]
     Indication: NEURALGIA
     Dates: start: 20120618, end: 20120705
  2. LEVOTHYROXINE SODIUM [Concomitant]
     Indication: PRODUCT USED FOR UNKNOWN INDICATION
  3. CO-DYDRAMOL [Concomitant]
     Indication: PRODUCT USED FOR UNKNOWN INDICATION
  4. ALMOTRIPTAN [Concomitant]
     Indication: PRODUCT USED FOR UNKNOWN INDICATION

REACTIONS (3)
  - DISTURBANCE IN ATTENTION [None]
  - HYPERSOMNIA [None]
  - SOMNOLENCE [None]
